FAERS Safety Report 6295788-1 (Version None)
Quarter: 2009Q3

REPORT INFORMATION
  Report Type: 
  Country: None (occurrence: None)
  Receive Date: 20090804
  Receipt Date: 20090720
  Transmission Date: 20100115
  Serious: Yes (Other)
  Sender: FDA-Public Use
  Company Number: BR-PFIZER INC-2009200040

PATIENT
  Age: 55 Year

DRUGS (6)
  1. CHAMPIX [Suspect]
     Indication: TOBACCO USER
     Dosage: UNKNOWN
     Dates: start: 20090301
  2. CORGARD [Concomitant]
     Indication: HYPERTENSION
     Dosage: UNK
     Dates: start: 19940101
  3. CORGARD [Concomitant]
     Indication: HEART RATE IRREGULAR
  4. PLAVIX [Concomitant]
     Indication: VEIN DISORDER
     Dosage: UNK
     Dates: start: 19940101
  5. PRAVASTATIN SODIUM [Concomitant]
     Dosage: UNK
     Dates: start: 19940101
  6. METFORMIN [Concomitant]
     Indication: DIABETES MELLITUS
     Dosage: UNK
     Dates: start: 19940101

REACTIONS (5)
  - ABDOMINAL RIGIDITY [None]
  - GASTRIC DILATATION [None]
  - HEADACHE [None]
  - NAUSEA [None]
  - NERVOUSNESS [None]
